FAERS Safety Report 5850337-4 (Version None)
Quarter: 2008Q3

REPORT INFORMATION
  Report Type: 
  Country: None (occurrence: None)
  Receive Date: 20080819
  Receipt Date: 20080805
  Transmission Date: 20090109
  Serious: Yes (Other)
  Sender: FDA-Public Use
  Company Number: US-MERCK-0808USA01066

PATIENT
  Age: 38 Year
  Sex: Female
  Weight: 54 kg

DRUGS (4)
  1. DECADRON [Suspect]
     Indication: BLOOD CORTISOL
     Route: 048
  2. DECADRON [Suspect]
     Route: 048
  3. DECADRON [Suspect]
     Route: 048
  4. CORTICORELIN ACETATE [Concomitant]
     Route: 042

REACTIONS (2)
  - ADRENAL MASS [None]
  - DRUG INEFFECTIVE [None]
